FAERS Safety Report 14935848 (Version 2)
Quarter: 2018Q2

REPORT INFORMATION
  Report Type: Spontaneous
  Country: US (occurrence: US)
  Receive Date: 20180524
  Receipt Date: 20180626
  Transmission Date: 20180711
  Serious: No
  Sender: FDA-Public Use
  Company Number: US-GLAXOSMITHKLINE-US2018087759

PATIENT
  Sex: Female

DRUGS (15)
  1. CETIRIZINE [Concomitant]
     Active Substance: CETIRIZINE HYDROCHLORIDE
  2. TIZANIDINE. [Concomitant]
     Active Substance: TIZANIDINE
  3. FUROSEMIDE. [Concomitant]
     Active Substance: FUROSEMIDE
  4. ATORVASTATIN [Concomitant]
     Active Substance: ATORVASTATIN
  5. FLUTICASONE. [Concomitant]
     Active Substance: FLUTICASONE
  6. LOPERAMIDE [Concomitant]
     Active Substance: LOPERAMIDE
  7. TRAMADOL. [Concomitant]
     Active Substance: TRAMADOL
  8. DEPAKOTE [Concomitant]
     Active Substance: DIVALPROEX SODIUM
  9. GLIMEPIRIDE. [Concomitant]
     Active Substance: GLIMEPIRIDE
  10. TANZEUM [Suspect]
     Active Substance: ALBIGLUTIDE
     Indication: PRODUCT USED FOR UNKNOWN INDICATION
     Dosage: 50 MG, WE
     Route: 058
     Dates: start: 2014
  11. GABAPENTIN. [Concomitant]
     Active Substance: GABAPENTIN
  12. METFORMIN [Concomitant]
     Active Substance: METFORMIN HYDROCHLORIDE
  13. FISH OIL [Concomitant]
     Active Substance: FISH OIL
  14. MELOXICAM. [Concomitant]
     Active Substance: MELOXICAM
  15. LATUDA [Concomitant]
     Active Substance: LURASIDONE HYDROCHLORIDE

REACTIONS (2)
  - Underdose [Unknown]
  - Wrong technique in device usage process [Unknown]
